FAERS Safety Report 20151653 (Version 1)
Quarter: 2021Q4

REPORT INFORMATION
  Report Type: Spontaneous
  Country: CN (occurrence: CN)
  Receive Date: 20211206
  Receipt Date: 20211206
  Transmission Date: 20220303
  Serious: Yes (Death)
  Sender: FDA-Public Use
  Company Number: CN-HQ SPECIALTY-CN-2021INT000230

PATIENT

DRUGS (5)
  1. CISPLATIN [Suspect]
     Active Substance: CISPLATIN
     Indication: Oesophageal squamous cell carcinoma
     Dosage: 25 MG/M2,  5 OR 6 CYCLES
     Route: 065
  2. CISPLATIN [Suspect]
     Active Substance: CISPLATIN
     Dosage: FOUR WEEKS AFTER COMPLETION OF CCRT, DAYS 1-3 WITH A 4 WEEK INTERVAL UNK
     Route: 065
  3. DOCETAXEL [Suspect]
     Active Substance: DOCETAXEL
     Indication: Oesophageal squamous cell carcinoma
     Dosage: 25 MG/M2,  5 OR 6 CYCLES
     Route: 065
  4. DOCETAXEL [Suspect]
     Active Substance: DOCETAXEL
     Dosage: 75MG ON DAY 1,WITH A 4 WEEK INTERVAL
     Route: 065
  5. RADIATION THERAPY [Suspect]
     Active Substance: RADIATION THERAPY
     Indication: Oesophageal squamous cell carcinoma
     Dosage: TOTAL RADIATION DOSE OF 50?60 GY (MEDIAN DOSE 50.4 GY) GIVEN DAILY FRACTIONS OF 1.8-2.0 GY
     Route: 065

REACTIONS (1)
  - Pneumonia aspiration [Fatal]
